FAERS Safety Report 5627107-5 (Version None)
Quarter: 2008Q1

REPORT INFORMATION
  Report Type: 
  Country: None (occurrence: None)
  Receive Date: 20080129
  Receipt Date: 20070419
  Transmission Date: 20080703
  Serious: Yes (Other)
  Sender: FDA-Public Use
  Company Number: 8024982

PATIENT
  Age: 46 Year
  Sex: Male

DRUGS (22)
  1. KEPPRA [Suspect]
     Dates: start: 20030903
  2. LORAZEPAM [Concomitant]
  3. LISINOPRIL [Concomitant]
  4. MORPHINE [Concomitant]
  5. CELEBREX [Concomitant]
  6. CEPHALEXIN [Concomitant]
  7. FLUOXETINE [Concomitant]
  8. NEURONTIN [Concomitant]
  9. TEMAZEPAM [Concomitant]
  10. MEPERIDINE HCL [Concomitant]
  11. RANITIDINE HCL [Concomitant]
  12. CARBAMAZEPINE [Concomitant]
  13. ALBUTEROL S04 [Concomitant]
  14. EFFEXOR [Concomitant]
  15. CLONIDINE HCL [Concomitant]
  16. ALPRAZOLAM [Concomitant]
  17. DIOVAN /01319601/ [Concomitant]
  18. OXYCODONE HCL [Concomitant]
  19. ZYRTEC [Concomitant]
  20. CODEINE SUL TAB [Concomitant]
  21. HYDROXYZINE PAMOATE [Concomitant]
  22. TEMAZEPAM [Concomitant]

REACTIONS (1)
  - SUICIDE ATTEMPT [None]
